FAERS Safety Report 23236633 (Version 7)
Quarter: 2024Q1

REPORT INFORMATION
  Report Type: Spontaneous
  Country: US (occurrence: US)
  Receive Date: 20231128
  Receipt Date: 20240305
  Transmission Date: 20240410
  Serious: Yes (Other)
  Sender: FDA-Public Use
  Company Number: US-GLAXOSMITHKLINE-US2023AMR160255

PATIENT

DRUGS (4)
  1. ZEJULA [Suspect]
     Active Substance: NIRAPARIB
     Indication: Ovarian cancer
     Dosage: 300 MG, QD
     Dates: end: 20231120
  2. ZEJULA [Suspect]
     Active Substance: NIRAPARIB
     Dosage: UNK (LOWER DOSE)
  3. ZEJULA [Suspect]
     Active Substance: NIRAPARIB
     Dosage: 200 MG, QD
  4. ZEJULA [Suspect]
     Active Substance: NIRAPARIB
     Dosage: 100 MG, QD

REACTIONS (5)
  - Immunodeficiency [Unknown]
  - Myalgia [Recovering/Resolving]
  - Platelet count decreased [Not Recovered/Not Resolved]
  - Tenderness [Unknown]
  - Petechiae [Unknown]
